FAERS Safety Report 5859914-8 (Version None)
Quarter: 2008Q3

REPORT INFORMATION
  Report Type: 
  Country: None (occurrence: None)
  Receive Date: 20080818
  Receipt Date: 20080507
  Transmission Date: 20090109
  Serious: No
  Sender: FDA-Public Use
  Company Number: WAES 0805USA01708

PATIENT
  Age: 76 Year
  Sex: Female
  Weight: 56.246 kg

DRUGS (4)
  1. JANUVIA [Suspect]
     Indication: TYPE 2 DIABETES MELLITUS
     Dosage: 100 MG/DAILY/PO
     Route: 048
     Dates: start: 20070914
  2. HYZAAR [Concomitant]
  3. VYTORIN [Concomitant]
  4. ATENOLOL [Concomitant]

REACTIONS (2)
  - FATIGUE [None]
  - HEPATIC ENZYME INCREASED [None]
